FAERS Safety Report 18958342 (Version 1)
Quarter: 2021Q1

REPORT INFORMATION
  Report Type: Spontaneous
  Country: US (occurrence: US)
  Receive Date: 20210302
  Receipt Date: 20210302
  Transmission Date: 20210420
  Serious: Yes (Other)
  Sender: FDA-Public Use
  Company Number: US-ASTRAZENECA-2021A080658

PATIENT
  Age: 21720 Day
  Sex: Female
  Weight: 63.5 kg

DRUGS (3)
  1. IMFINZI [Suspect]
     Active Substance: DURVALUMAB
     Indication: LUNG NEOPLASM MALIGNANT
     Route: 042
     Dates: start: 20210104
  2. CARBOPLATIN. [Concomitant]
     Active Substance: CARBOPLATIN
     Indication: NEOPLASM MALIGNANT
  3. ETOPOSIDE. [Concomitant]
     Active Substance: ETOPOSIDE
     Indication: NEOPLASM MALIGNANT

REACTIONS (2)
  - Pneumonitis [Unknown]
  - Brain cancer metastatic [Unknown]

NARRATIVE: CASE EVENT DATE: 20210222
